FAERS Safety Report 14963697 (Version 4)
Quarter: 2018Q4

REPORT INFORMATION
  Report Type: Report from Study
  Country: JP (occurrence: JP)
  Receive Date: 20180601
  Receipt Date: 20181031
  Transmission Date: 20190204
  Serious: Yes (Other)
  Sender: FDA-Public Use
  Company Number: JP-TAKEDA-2018MPI006602

PATIENT
  Age: 69 Year
  Sex: Male
  Weight: 61 kg

DRUGS (8)
  1. DEXAMETHASONE. [Suspect]
     Active Substance: DEXAMETHASONE
     Indication: PLASMA CELL MYELOMA
     Dosage: 20 MG, QD
     Route: 065
     Dates: start: 20180116, end: 20180509
  2. BORTEZOMIB. [Suspect]
     Active Substance: BORTEZOMIB
     Indication: PLASMA CELL MYELOMA
     Dosage: UNK
     Route: 058
     Dates: start: 20171128, end: 20171226
  3. BORTEZOMIB. [Suspect]
     Active Substance: BORTEZOMIB
     Dosage: 1.3 MG/M2, QD
     Route: 058
     Dates: start: 20180116, end: 20180410
  4. BORTEZOMIB. [Suspect]
     Active Substance: BORTEZOMIB
     Dosage: 1.3 MG/M2, UNK
     Route: 058
     Dates: start: 20180116, end: 20180508
  5. DARZALEX [Suspect]
     Active Substance: DARATUMUMAB
     Dosage: 16 MG/KG, 1/WEEK
     Route: 041
     Dates: start: 20180403, end: 20180424
  6. DARZALEX [Suspect]
     Active Substance: DARATUMUMAB
     Indication: PLASMA CELL MYELOMA
     Dosage: 16 MG/KG, 1/WEEK
     Route: 041
     Dates: start: 20180116, end: 20180327
  7. DENOSUMAB [Concomitant]
     Active Substance: DENOSUMAB
     Indication: PLASMA CELL MYELOMA
     Dosage: UNK
     Route: 065
  8. FILGRASTIM BS [Concomitant]
     Active Substance: FILGRASTIM
     Indication: BONE MARROW FAILURE
     Dosage: 75 UG, QD
     Route: 065
     Dates: start: 20180121, end: 20180326

REACTIONS (7)
  - Constipation [Recovering/Resolving]
  - Infusion related reaction [Recovered/Resolved]
  - Infection [Recovering/Resolving]
  - Bone marrow failure [Recovering/Resolving]
  - Sneezing [Recovered/Resolved]
  - Hot flush [Recovered/Resolved]
  - Diarrhoea [Recovering/Resolving]

NARRATIVE: CASE EVENT DATE: 20180116
